FAERS Safety Report 15122403 (Version 1)
Quarter: 2018Q3

REPORT INFORMATION
  Report Type: Spontaneous
  Country: US (occurrence: US)
  Receive Date: 20180709
  Receipt Date: 20180709
  Transmission Date: 20181010
  Serious: Yes (Other)
  Sender: FDA-Public Use
  Company Number: US-TAKEDA-2018TUS021512

PATIENT
  Sex: Female

DRUGS (1)
  1. ENTYVIO [Suspect]
     Active Substance: VEDOLIZUMAB
     Indication: PRODUCT USED FOR UNKNOWN INDICATION
     Dosage: UNK
     Route: 065

REACTIONS (10)
  - Cystitis [Unknown]
  - Influenza like illness [Unknown]
  - Staphylococcal infection [Unknown]
  - Pneumonia [Unknown]
  - Kidney infection [Unknown]
  - Ear lobe infection [Unknown]
  - Myalgia [Unknown]
  - Lung infection [Unknown]
  - Headache [Unknown]
  - Liver disorder [Unknown]
